FAERS Safety Report 4633238-9 (Version None)
Quarter: 2005Q2

REPORT INFORMATION
  Report Type: 
  Country: None (occurrence: None)
  Receive Date: 20050408
  Receipt Date: 20050330
  Transmission Date: 20051028
  Serious: Yes (Hospitalization)
  Sender: FDA-Public Use
  Company Number: 2005052762

PATIENT
  Age: 69 Year
  Sex: Male
  Weight: 71.8 kg

DRUGS (5)
  1. PHENYTOIN [Suspect]
     Indication: EPILEPSY
  2. MINOXIDIL [Concomitant]
  3. PERINDOPRIL (PERINDOPRIL) [Concomitant]
  4. ATENOLOL [Concomitant]
  5. FRUMIL (AMILORIDE HYDROCHLORIDE, FUROSEMIDE) [Concomitant]

REACTIONS (2)
  - MENIERE'S DISEASE [None]
  - ORTHOSTATIC HYPOTENSION [None]
